FAERS Safety Report 8577510-9 (Version None)
Quarter: 2012Q3

REPORT INFORMATION
  Report Type: 
  Country: None (occurrence: None)
  Receive Date: 20120807
  Receipt Date: 20120727
  Transmission Date: 20120928
  Serious: Yes (Other)
  Sender: FDA-Public Use
  Company Number: US-BAYER-2012-076167

PATIENT
  Age: 81 Year
  Sex: Female
  Weight: 66.213 kg

DRUGS (9)
  1. ASPIRIN [Suspect]
     Indication: MYOCARDIAL INFARCTION
  2. LYRICA [Concomitant]
     Indication: DIABETIC NEUROPATHY
     Dosage: 50 MG, QD
  3. ISOSORBIDE DINITRATE [Concomitant]
     Indication: CARDIAC DISORDER
     Dosage: 90 MG, QD
     Route: 048
  4. NEXIUM [Concomitant]
     Indication: GASTROOESOPHAGEAL REFLUX DISEASE
     Dosage: 40 MG, QD
  5. LIPITOR [Concomitant]
     Indication: BLOOD CHOLESTEROL INCREASED
     Dosage: 50 MG, QD
  6. CELEBREX [Concomitant]
     Indication: POLYARTHRITIS
  7. LIPITOR [Concomitant]
     Indication: BLOOD TRIGLYCERIDES ABNORMAL
  8. LEVOTHYROXINE SODIUM [Concomitant]
     Indication: THYROID DISORDER
     Dosage: 100 MCG/24HR, QD
  9. ASPIRIN [Suspect]
     Indication: CARDIAC FAILURE CONGESTIVE
     Dosage: 81 MG, QD
     Route: 048
     Dates: start: 19970101

REACTIONS (4)
  - DIABETIC NEUROPATHY [None]
  - SPINAL COLUMN STENOSIS [None]
  - NERVE COMPRESSION [None]
  - SPINAL CORD INJURY [None]
